FAERS Safety Report 6886896-2 (Version None)
Quarter: 2010Q3

REPORT INFORMATION
  Report Type: 
  Country: None (occurrence: None)
  Receive Date: 20100730
  Receipt Date: 20100719
  Transmission Date: 20110219
  Serious: Yes (Life-Threatening)
  Sender: FDA-Public Use
  Company Number: DE-JNJFOC-20100707272

PATIENT
  Sex: Male

DRUGS (5)
  1. REOPRO [Suspect]
     Indication: MYOCARDIAL INFARCTION
     Route: 042
  2. REOPRO [Suspect]
     Route: 042
  3. ACETYLSALICYLIC ACID SRT [Concomitant]
     Indication: MYOCARDIAL INFARCTION
  4. HEPARIN [Concomitant]
     Indication: MYOCARDIAL INFARCTION
  5. PRASUGREL [Concomitant]
     Indication: MYOCARDIAL INFARCTION

REACTIONS (4)
  - BRADYCARDIA [None]
  - CARDIOGENIC SHOCK [None]
  - PYREXIA [None]
  - VENTRICULAR FIBRILLATION [None]
